FAERS Safety Report 7790594-0 (Version None)
Quarter: 2011Q3

REPORT INFORMATION
  Report Type: 
  Country: None (occurrence: None)
  Receive Date: 20110930
  Receipt Date: 20110927
  Transmission Date: 20111222
  Serious: Yes (Disabling)
  Sender: FDA-Public Use
  Company Number: GB-PFIZER INC-2011230736

PATIENT
  Sex: Female

DRUGS (11)
  1. TACROLIMUS [Concomitant]
     Dosage: 2.5MG ON MORNING AND 600MG / 2MG AT NIGHT
  2. CLINDAMYCIN HCL [Suspect]
     Dosage: 300 MG, UNK
     Route: 048
     Dates: start: 20110901
  3. ACETYLSALICYLIC ACID [Concomitant]
     Dosage: 75 UNK, 1X/DAY
  4. LEVOTHYROXINE [Concomitant]
     Dosage: 100 UNK, 1X/DAY
  5. LAMOTRIGINE [Concomitant]
     Dosage: 100MG IN MORNING, 125MG AT NIGHT
  6. PRAVASTATIN [Concomitant]
     Dosage: 10 X DAILY
  7. ALENDRONIC ACID [Concomitant]
  8. CLINDAMYCIN HCL [Suspect]
     Dosage: 150 MG, UNK
     Route: 048
     Dates: start: 20110801, end: 20110831
  9. OMEPRAZOLE [Concomitant]
     Dosage: 20 UNK, 1X/DAY
  10. VALPROATE SODIUM [Concomitant]
     Dosage: 400MG IN THE MORNING, 600MG AT NIGHT
  11. PARACETAMOL [Concomitant]

REACTIONS (3)
  - MOVEMENT DISORDER [None]
  - PARALYSIS [None]
  - APHASIA [None]
